FAERS Safety Report 5374121-3 (Version None)
Quarter: 2007Q2

REPORT INFORMATION
  Report Type: 
  Country: None (occurrence: None)
  Receive Date: 20070627
  Receipt Date: 20070529
  Transmission Date: 20071010
  Serious: Yes (Other)
  Sender: FDA-Public Use
  Company Number: ENTC2007-0159

PATIENT
  Age: 80 Year
  Sex: Male

DRUGS (2)
  1. STALEVO 100 [Suspect]
     Indication: PARKINSON'S DISEASE
     Dosage: 150 TDS UNKNOWN
     Dates: start: 20070511
  2. SINEMET [Concomitant]

REACTIONS (2)
  - DYSPNOEA [None]
  - HYPERVENTILATION [None]
